FAERS Safety Report 20646257 (Version 1)
Quarter: 2022Q1

REPORT INFORMATION
  Report Type: Spontaneous
  Country: CN (occurrence: CN)
  Receive Date: 20220329
  Receipt Date: 20220329
  Transmission Date: 20220423
  Serious: Yes (Other)
  Sender: FDA-Public Use
  Company Number: CN-SA-SAC20220322000113

PATIENT
  Age: 78 Year
  Sex: Male

DRUGS (2)
  1. LANTUS [Suspect]
     Active Substance: INSULIN GLARGINE
     Indication: Hyperglycaemia
     Route: 058
     Dates: start: 20220205, end: 20220217
  2. INSULIN ASPART [Suspect]
     Active Substance: INSULIN ASPART
     Dosage: 8 U, TID
     Route: 058

REACTIONS (1)
  - Blindness transient [Recovered/Resolved]

NARRATIVE: CASE EVENT DATE: 20220210
